FAERS Safety Report 5311868-9 (Version None)
Quarter: 2007Q2

REPORT INFORMATION
  Report Type: 
  Country: None (occurrence: None)
  Receive Date: 20070430
  Receipt Date: 20060501
  Transmission Date: 20071010
  Serious: No
  Sender: FDA-Public Use
  Company Number: 2006UW07879

PATIENT
  Age: 69 Year
  Sex: Female
  Weight: 74.8 kg

DRUGS (2)
  1. NEXIUM [Suspect]
     Indication: GASTROOESOPHAGEAL REFLUX DISEASE
     Route: 048
     Dates: start: 20051201, end: 20060401
  2. LEXCOL XL [Concomitant]

REACTIONS (11)
  - ABDOMINAL DISTENSION [None]
  - CONFUSIONAL STATE [None]
  - ERUCTATION [None]
  - FLATULENCE [None]
  - HEADACHE [None]
  - INSOMNIA [None]
  - MEMORY IMPAIRMENT [None]
  - SWOLLEN TONGUE [None]
  - TINNITUS [None]
  - TOOTH DISORDER [None]
  - WEIGHT INCREASED [None]
